FAERS Safety Report 9579549 (Version 2)
Quarter: 2013Q4

REPORT INFORMATION
  Report Type: Spontaneous
  Country: US (occurrence: US)
  Receive Date: 20131001
  Receipt Date: 20131001
  Transmission Date: 20140711
  Serious: No
  Sender: FDA-Public Use
  Company Number: US-AMGEN-USASP2013001263

PATIENT
  Age: 54 Year
  Sex: Female
  Weight: 58.5 kg

DRUGS (10)
  1. ENBREL [Suspect]
     Indication: RHEUMATOID ARTHRITIS
     Dosage: 50 MG, QWK
     Route: 058
  2. METHOTREXATE [Concomitant]
     Dosage: 2.5 MG, UNK
  3. PREDNISONE [Concomitant]
     Dosage: 1 MG, UNK
  4. IBANDRONATE [Concomitant]
     Dosage: 150 MG, UNK
  5. ADVIL                              /00044201/ [Concomitant]
     Dosage: 200 MG, UNK
  6. FISH OIL [Concomitant]
     Dosage: UNK
  7. VITAMIN D                          /00107901/ [Concomitant]
     Dosage: 1000 UNIT, UNK
  8. AVAR E [Concomitant]
     Dosage: 10-5 %
  9. FOLIC ACID [Concomitant]
     Dosage: 20 MG, UNK
  10. CO Q 10                            /00517201/ [Concomitant]
     Dosage: 100 MG, UNK

REACTIONS (3)
  - Injection site bruising [Unknown]
  - Vision blurred [Unknown]
  - Injection site pain [Unknown]
